FAERS Safety Report 9324262 (Version 1)
Quarter: 2013Q2

REPORT INFORMATION
  Report Type: Spontaneous
  Country: US (occurrence: None)
  Receive Date: 20130529
  Receipt Date: 20130529
  Transmission Date: 20140414
  Serious: Yes (Other)
  Sender: FDA-Public Use
  Company Number: 2013AP005364

PATIENT
  Age: 51 Year
  Sex: Male

DRUGS (1)
  1. BUPROPION HYDROCHLORIDE TABLETS [Suspect]
     Route: 045

REACTIONS (9)
  - Serotonin syndrome [None]
  - Dependence [None]
  - Drug abuse [None]
  - Wrong technique in drug usage process [None]
  - Tachycardia [None]
  - Mydriasis [None]
  - Myoclonus [None]
  - Hyperreflexia [None]
  - Hyperhidrosis [None]
